FAERS Safety Report 5662451-7 (Version None)
Quarter: 2008Q1

REPORT INFORMATION
  Report Type: 
  Country: None (occurrence: None)
  Receive Date: 20080313
  Receipt Date: 20080303
  Transmission Date: 20080703
  Serious: Yes (Other)
  Sender: FDA-Public Use
  Company Number: PHBS2008YU02862

PATIENT
  Age: 8 Year
  Sex: Female

DRUGS (1)
  1. ELIDEL [Suspect]
     Indication: DERMATITIS ATOPIC
     Dosage: UNK, BID
     Route: 061
     Dates: start: 20080215, end: 20080220

REACTIONS (6)
  - DISEASE PROGRESSION [None]
  - ERYTHEMA [None]
  - PRURITUS [None]
  - RESPIRATORY TRACT INFECTION [None]
  - SKIN EXFOLIATION [None]
  - SKIN TIGHTNESS [None]
